FAERS Safety Report 19976604 (Version 3)
Quarter: 2022Q2

REPORT INFORMATION
  Report Type: Other
  Country: US (occurrence: None)
  Receive Date: 20211021
  Receipt Date: 20220513
  Transmission Date: 20220721
  Serious: Yes (Other)
  Sender: FDA-Public Use
  Company Number: US-ROCHE-2935344

PATIENT
  Sex: Female
  Weight: 74.910 kg

DRUGS (4)
  1. OCREVUS [Suspect]
     Active Substance: OCRELIZUMAB
     Indication: Relapsing-remitting multiple sclerosis
     Dosage: DATE OF TREATMENT: /JUN/2018, 19/AUG/2020, 19/MAR/2021, 08/SEP/2021, 20/SEP/2021,
     Route: 042
     Dates: start: 201803
  2. OCREVUS [Suspect]
     Active Substance: OCRELIZUMAB
     Dosage: DATE OF TREATMENT:  19/AUG/2020, 19/MAR/2021, 08/SEP/2021, 20/SEP/2021?300 MG DAY 1 AND DAY 15, THEN
     Route: 042
     Dates: start: 201806
  3. SINGULAIR [Concomitant]
     Active Substance: MONTELUKAST SODIUM
  4. ARNUITY ELLIPTA [Concomitant]
     Active Substance: FLUTICASONE FUROATE

REACTIONS (8)
  - Productive cough [Not Recovered/Not Resolved]
  - Retinal tear [Recovered/Resolved]
  - Bronchitis [Unknown]
  - Upper respiratory tract infection [Unknown]
  - Anxiety [Recovered/Resolved]
  - Multiple sclerosis relapse [Recovered/Resolved]
  - Respiratory disorder [Recovered/Resolved with Sequelae]
  - Aphonia [Recovered/Resolved]

NARRATIVE: CASE EVENT DATE: 20190101
